FAERS Safety Report 17367265 (Version 3)
Quarter: 2021Q2

REPORT INFORMATION
  Report Type: Spontaneous
  Country: JP (occurrence: JP)
  Receive Date: 20200204
  Receipt Date: 20210401
  Transmission Date: 20210716
  Serious: Yes (Death, Hospitalization, Other)
  Sender: FDA-Public Use
  Company Number: JP-ELI_LILLY_AND_COMPANY-JP201912005366

PATIENT
  Age: 76 Year
  Sex: Female
  Weight: 73 kg

DRUGS (8)
  1. VERZENIO [Suspect]
     Active Substance: ABEMACICLIB
     Dosage: 150 MG, BID
     Route: 048
     Dates: start: 20190511, end: 20190922
  2. VERZENIO [Suspect]
     Active Substance: ABEMACICLIB
     Indication: BREAST CANCER RECURRENT
     Dosage: 100 MG, BID
     Route: 048
     Dates: start: 20190329, end: 20190510
  3. NOVAMIN [AMIKACIN SULFATE] [Concomitant]
  4. FUROSEMIDE. [Concomitant]
     Active Substance: FUROSEMIDE
  5. DENOTAS [Concomitant]
     Active Substance: CALCIUM CARBONATE\CHOLECALCIFEROL\MAGNESIUM CARBONATE
     Dosage: 2 DOSAGE FORM, DAILY
     Dates: end: 20190922
  6. FEMARA [Concomitant]
     Active Substance: LETROZOLE
     Indication: BREAST CANCER RECURRENT
     Dosage: 1 DOSAGE FORM, DAILY
     Route: 048
     Dates: start: 20190329, end: 20190922
  7. CELECOX [Concomitant]
     Active Substance: CELECOXIB
     Dosage: 200 MG, BID
     Route: 065
     Dates: end: 20190922
  8. MAGMITT [Concomitant]
     Active Substance: MAGNESIUM OXIDE

REACTIONS (7)
  - Pericardial effusion [Unknown]
  - Ascites [Unknown]
  - Pleural effusion [Unknown]
  - Subcutaneous emphysema [Unknown]
  - Interstitial lung disease [Fatal]
  - Cardiomegaly [Unknown]
  - Pneumomediastinum [Unknown]

NARRATIVE: CASE EVENT DATE: 20190705
